FAERS Safety Report 7633330-0 (Version None)
Quarter: 2011Q3

REPORT INFORMATION
  Report Type: 
  Country: None (occurrence: None)
  Receive Date: 20110725
  Receipt Date: 20100720
  Transmission Date: 20111222
  Serious: No
  Sender: FDA-Public Use
  Company Number: US-BRISTOL-MYERS SQUIBB COMPANY-15193774

PATIENT
  Age: 41 Year
  Sex: Female
  Weight: 100 kg

DRUGS (7)
  1. HYDROCHLOROTHIAZIDE [Concomitant]
  2. NEXIUM [Concomitant]
  3. PERCOCET [Concomitant]
  4. NIZORAL [Concomitant]
  5. TOPAMAX [Concomitant]
  6. SPRYCEL [Suspect]
     Indication: CHRONIC MYELOID LEUKAEMIA
     Route: 048
     Dates: start: 20080201
  7. ZOFRAN [Concomitant]
     Indication: NAUSEA

REACTIONS (4)
  - CONSTIPATION [None]
  - EYE SWELLING [None]
  - WHITE BLOOD CELL COUNT INCREASED [None]
  - NAUSEA [None]
